FAERS Safety Report 9099499 (Version 2)
Quarter: 2013Q3

REPORT INFORMATION
  Report Type: Report from Study
  Country: FR (occurrence: FR)
  Receive Date: 20130214
  Receipt Date: 20130805
  Transmission Date: 20140515
  Serious: Yes (Death, Life-Threatening, Hospitalization)
  Sender: FDA-Public Use
  Company Number: FR-ROCHE-1189312

PATIENT
  Age: 79 Year
  Sex: Female
  Weight: 95 kg

DRUGS (9)
  1. TOCILIZUMAB [Suspect]
     Indication: RHEUMATOID ARTHRITIS
     Route: 042
     Dates: start: 20121020, end: 20130121
  2. CORTANCYL [Concomitant]
     Route: 048
  3. STAGID [Concomitant]
     Indication: DIABETES MELLITUS
     Route: 048
  4. UDILIV [Concomitant]
     Indication: HYPERTENSION
     Route: 048
  5. DEPAKINE [Concomitant]
     Route: 048
  6. EUPANTOL [Concomitant]
     Route: 048
  7. IKOREL [Concomitant]
     Route: 048
  8. BI-TILDIEM [Concomitant]
     Route: 048
  9. XANAX [Concomitant]
     Route: 048

REACTIONS (3)
  - Cerebrovascular accident [Fatal]
  - Septic shock [Recovered/Resolved with Sequelae]
  - Peripheral ischaemia [Recovered/Resolved with Sequelae]
